FAERS Safety Report 9904735 (Version 2)
Quarter: 2014Q2

REPORT INFORMATION
  Report Type: Spontaneous
  Country: US (occurrence: US)
  Receive Date: 20140218
  Receipt Date: 20140515
  Transmission Date: 20141212
  Serious: Yes (Hospitalization, Other)
  Sender: FDA-Public Use
  Company Number: US-BAYER-2014-024757

PATIENT
  Age: 23 Year
  Sex: Female

DRUGS (3)
  1. MIRENA [Suspect]
     Dosage: 20 MCG/24HR, CONT
     Route: 015
     Dates: start: 20081120, end: 20110116
  2. BUPROPION [Concomitant]
     Indication: DEPRESSION
     Dosage: UNK
     Dates: start: 20101122
  3. BUPROPION [Concomitant]
     Indication: ANXIETY

REACTIONS (5)
  - Device failure [None]
  - Device dislocation [None]
  - Injury [None]
  - Emotional distress [None]
  - Pain [None]
